FAERS Safety Report 12606568 (Version 1)
Quarter: 2016Q3

REPORT INFORMATION
  Report Type: Spontaneous
  Country: US (occurrence: US)
  Receive Date: 20160729
  Receipt Date: 20160729
  Transmission Date: 20161109
  Serious: Yes (Hospitalization, Other)
  Sender: FDA-Public Use
  Company Number: US-OTSUKA-2016_018013

PATIENT
  Age: 47 Year
  Sex: Male

DRUGS (3)
  1. NUEDEXTA [Suspect]
     Active Substance: DEXTROMETHORPHAN HYDROBROMIDE\QUINIDINE SULFATE
     Dosage: UNK, QD
     Route: 065
     Dates: end: 20160713
  2. NUEDEXTA [Suspect]
     Active Substance: DEXTROMETHORPHAN HYDROBROMIDE\QUINIDINE SULFATE
     Dosage: UNK, BID
     Route: 065
     Dates: start: 201607
  3. NUEDEXTA [Suspect]
     Active Substance: DEXTROMETHORPHAN HYDROBROMIDE\QUINIDINE SULFATE
     Indication: DEPRESSION
     Dosage: 20/10 MG, QD
     Route: 048
     Dates: start: 201607

REACTIONS (7)
  - Personality change [Unknown]
  - Myocardial infarction [Recovering/Resolving]
  - Off label use [Unknown]
  - Therapeutic response unexpected [Unknown]
  - Cerebrovascular accident [Recovering/Resolving]
  - Inability to afford medication [Unknown]
  - Depression [Unknown]

NARRATIVE: CASE EVENT DATE: 20160713
